FAERS Safety Report 7324644-2 (Version None)
Quarter: 2011Q1

REPORT INFORMATION
  Report Type: 
  Country: None (occurrence: None)
  Receive Date: 20110301
  Receipt Date: 20110223
  Transmission Date: 20110831
  Serious: Yes (Death, Other)
  Sender: FDA-Public Use
  Company Number: PHHY2011AU15013

PATIENT

DRUGS (3)
  1. RISPERDONE [Concomitant]
  2. SALBUTAMOL [Concomitant]
  3. CLOZAPINE [Suspect]
     Indication: SCHIZOPHRENIA
     Dosage: 50 MG, DAILY

REACTIONS (6)
  - ASTHMA [None]
  - CHEST PAIN [None]
  - RESPIRATORY RATE INCREASED [None]
  - MYOCARDITIS [None]
  - CORONARY ARTERY STENOSIS [None]
  - PYREXIA [None]
